FAERS Safety Report 10262486 (Version 1)
Quarter: 2014Q2

REPORT INFORMATION
  Report Type: Spontaneous
  Country: GB (occurrence: GB)
  Receive Date: 20140626
  Receipt Date: 20140626
  Transmission Date: 20141212
  Serious: Yes (Disabling)
  Sender: FDA-Public Use
  Company Number: GB-PFIZER INC-2014174498

PATIENT
  Age: 66 Year
  Sex: Female

DRUGS (1)
  1. PIROXICAM [Suspect]
     Indication: ARTHRITIS
     Dosage: 0.5 %, 5 TIMES DAILY
     Route: 061
     Dates: start: 201309

REACTIONS (3)
  - Application site inflammation [Not Recovered/Not Resolved]
  - Stasis dermatitis [Not Recovered/Not Resolved]
  - Concomitant disease aggravated [Not Recovered/Not Resolved]
